FAERS Safety Report 25755319 (Version 1)
Quarter: 2025Q3

REPORT INFORMATION
  Report Type: Report from Study
  Country: ZA (occurrence: ZA)
  Receive Date: 20250903
  Receipt Date: 20250903
  Transmission Date: 20251021
  Serious: Yes (Hospitalization)
  Sender: AMERICAN REGENT
  Company Number: ZA-AMERICAN REGENT INC-2025003322

PATIENT
  Sex: Male

DRUGS (2)
  1. FERINJECT [Suspect]
     Active Substance: FERRIC CARBOXYMALTOSE
     Indication: Iron deficiency anaemia
     Route: 042
     Dates: start: 20250715
  2. FERRIMED [CYANOCOBALAMIN;FERRIC HYDROXIDE POLYMALTOSE COMPLEX;FOLIC AC [Concomitant]
     Indication: Product used for unknown indication
     Route: 065

REACTIONS (3)
  - Laboratory test abnormal [Unknown]
  - Drug ineffective [Unknown]
  - Off label use [Unknown]

NARRATIVE: CASE EVENT DATE: 20250101
